FAERS Safety Report 25920594 (Version 1)
Quarter: 2025Q4

REPORT INFORMATION
  Report Type: Spontaneous
  Country: EU (occurrence: EU)
  Receive Date: 20251014
  Receipt Date: 20251014
  Transmission Date: 20260118
  Serious: Yes (Life-Threatening)
  Sender: MYLAN
  Company Number: EU-BAUSCH-BH-2025-017963

PATIENT
  Sex: Female

DRUGS (16)
  1. VANCOMYCIN [Suspect]
     Active Substance: VANCOMYCIN
     Indication: Septic shock
     Dosage: 30 MILLIGRAM, Q8H
  2. ACYCLOVIR [Suspect]
     Active Substance: ACYCLOVIR
     Indication: Septic shock
     Dosage: 40 MILLIGRAM, Q8H
  3. HYDROCORTISONE [Suspect]
     Active Substance: HYDROCORTISONE
     Indication: Septic shock
     Dosage: 2 MILLIGRAM/KILOGRAM, Q8H
  4. MEROPENEM [Suspect]
     Active Substance: MEROPENEM
     Indication: Septic shock
     Dosage: 80 MILLIGRAM, Q8H
  5. AMIKACIN [Suspect]
     Active Substance: AMIKACIN
     Indication: Septic shock
     Dosage: 25 MILLIGRAM, QD (24 HOURS)
  6. FLUCONAZOLE [Suspect]
     Active Substance: FLUCONAZOLE
     Indication: Septic shock
     Dosage: 12 MILLIGRAM, QD (24 HOURS)
  7. DOPAMINE [Suspect]
     Active Substance: DOPAMINE HYDROCHLORIDE
     Indication: Septic shock
     Dosage: UNK
  8. NOREPINEPHRINE [Suspect]
     Active Substance: NOREPINEPHRINE
     Indication: Septic shock
     Dosage: UNK
  9. ACETAMINOPHEN [Suspect]
     Active Substance: ACETAMINOPHEN
     Indication: Septic shock
     Dosage: 25 MILLIGRAM, Q6H
  10. PHENOBARBITAL [Suspect]
     Active Substance: PHENOBARBITAL
     Indication: Septic shock
     Dosage: 6 MILLIGRAM, BID (12 HOURS)
  11. MORPHINE [Suspect]
     Active Substance: MORPHINE
     Indication: Septic shock
     Dosage: 0.1 MILLIGRAM, Q6H
  12. KETAMINE [Suspect]
     Active Substance: KETAMINE
     Indication: Septic shock
     Dosage: UNK
  13. ALBUMIN HUMAN [Suspect]
     Active Substance: ALBUMIN HUMAN
     Indication: Septic shock
     Dosage: 10 MILLILITER
  14. IMMUNE GLOBULIN NOS [Suspect]
     Active Substance: IMMUNE GLOBULIN NOS
     Indication: Septic shock
     Dosage: 2.5 GRAM
  15. NOREPINEPHRINE BITARTRATE [Suspect]
     Active Substance: NOREPINEPHRINE BITARTRATE
     Indication: Septic shock
     Dosage: UNK
  16. MANNITOL [Suspect]
     Active Substance: MANNITOL
     Indication: Septic shock
     Dosage: 1 GRAM, Q6H

REACTIONS (1)
  - Therapy non-responder [Unknown]
